FAERS Safety Report 5020810-X (Version None)
Quarter: 2006Q2

REPORT INFORMATION
  Report Type: 
  Country: None (occurrence: None)
  Receive Date: 20060608
  Receipt Date: 20060529
  Transmission Date: 20061013
  Serious: Yes (Other)
  Sender: FDA-Public Use
  Company Number: ES-BRISTOL-MYERS SQUIBB COMPANY-13392402

PATIENT
  Age: 60 Year
  Sex: Female

DRUGS (1)
  1. KARVEA [Suspect]
     Indication: HYPERTENSION
     Route: 048
     Dates: end: 20060101

REACTIONS (2)
  - BACK PAIN [None]
  - MYALGIA [None]
